FAERS Safety Report 8975991 (Version 1)
Quarter: 2012Q4

REPORT INFORMATION
  Report Type: 
  Country: US (occurrence: US)
  Receive Date: 20121219
  Receipt Date: 20121219
  Transmission Date: 20130627
  Serious: No
  Sender: FDA-Public Use
  Company Number: US-AMGEN-USASP2012056350

PATIENT
  Age: 63 Year
  Sex: Female
  Weight: 59.86 kg

DRUGS (12)
  1. PROLIA [Suspect]
     Indication: OSTEOPOROSIS POSTMENOPAUSAL
     Dosage: 60 mg, q6mo
     Route: 058
     Dates: start: 20120803
  2. LORTAB                             /00607101/ [Suspect]
     Indication: BACK PAIN
     Dosage: UNK UNK, qd
     Route: 048
  3. TAMOXIFEN [Concomitant]
     Indication: BREAST CANCER
     Dosage: 20 mg, qd
     Route: 048
  4. BABY ASPIRIN [Concomitant]
     Dosage: UNK
  5. VITAMIN D /00107901/ [Concomitant]
     Dosage: UNK UNK, 2 times/wk
  6. CLARITIN                           /00413701/ [Concomitant]
     Indication: HYPERSENSITIVITY
     Dosage: UNK
  7. PRAVASTATIN [Concomitant]
     Dosage: UNK
  8. VIACTIV                            /00751501/ [Concomitant]
     Dosage: UNK
  9. ASPIRIN [Concomitant]
     Indication: ATRIAL FIBRILLATION
     Dosage: 81 mg, qd
     Route: 048
  10. SIMVASTATIN [Concomitant]
     Indication: HYPERLIPIDAEMIA
     Dosage: 20 mg, qhs
     Route: 048
  11. METOPROLOL SUCCINATE [Concomitant]
     Indication: ATRIAL FIBRILLATION
     Dosage: 25 mg, qd
  12. CHOLECALCIFEROL [Concomitant]
     Dosage: 500000 IU, 2 times/wk

REACTIONS (5)
  - Pruritus [Not Recovered/Not Resolved]
  - Fatigue [Unknown]
  - Constipation [Unknown]
  - Scar [Unknown]
  - Pruritus generalised [Not Recovered/Not Resolved]
